FAERS Safety Report 6883496-5 (Version None)
Quarter: 2010Q3

REPORT INFORMATION
  Report Type: 
  Country: None (occurrence: None)
  Receive Date: 20100729
  Receipt Date: 20100728
  Transmission Date: 20110219
  Serious: Yes (Hospitalization, Other)
  Sender: FDA-Public Use
  Company Number: US-MERCK-0912USA00849

PATIENT
  Age: 66 Year
  Sex: Female
  Weight: 52 kg

DRUGS (1)
  1. FOSAMAX [Suspect]
     Indication: OSTEOPOROSIS
     Route: 048
     Dates: start: 19960101, end: 20080117

REACTIONS (33)
  - ABDOMINAL PAIN [None]
  - ABSCESS [None]
  - ADHESION [None]
  - ARTHROPATHY [None]
  - BILE DUCT STONE [None]
  - CATARACT [None]
  - DENTAL FISTULA [None]
  - DILATATION INTRAHEPATIC DUCT ACQUIRED [None]
  - DIVERTICULUM [None]
  - EXOSTOSIS [None]
  - FRACTURE [None]
  - GASTRITIS [None]
  - GINGIVAL PAIN [None]
  - HEPATIC ENZYME INCREASED [None]
  - HYPERTENSION [None]
  - IMPAIRED HEALING [None]
  - LIVER FUNCTION TEST ABNORMAL [None]
  - MASS [None]
  - OESOPHAGITIS [None]
  - ORAL CAVITY FISTULA [None]
  - ORAL INFECTION [None]
  - ORAL PAIN [None]
  - ORAL TORUS [None]
  - OSTEONECROSIS OF JAW [None]
  - PANCREATIC DUCT DILATATION [None]
  - PNEUMONIA [None]
  - POSTMENOPAUSAL HAEMORRHAGE [None]
  - PYREXIA [None]
  - SENSITIVITY OF TEETH [None]
  - SMALL INTESTINAL OBSTRUCTION [None]
  - STRESS FRACTURE [None]
  - TOOTH DISORDER [None]
  - TOOTH FRACTURE [None]
